FAERS Safety Report 4402663-3 (Version None)
Quarter: 2004Q3

REPORT INFORMATION
  Report Type: 
  Country: None (occurrence: None)
  Receive Date: 20040719
  Receipt Date: 20040702
  Transmission Date: 20050211
  Serious: Yes (Hospitalization, Other)
  Sender: FDA-Public Use
  Company Number: KII-2004-0011874

PATIENT
  Age: 20 Year
  Sex: Male

DRUGS (3)
  1. MORPHINE SULFATE [Suspect]
     Indication: DRUG USE FOR UNKNOWN INDICATION
     Dosage: ORAL
     Route: 048
  2. CANNABIS (CANNABIS) [Suspect]
     Indication: DRUG USE FOR UNKNOWN INDICATION
  3. BENZODIAZEPINE DERIVATIVES() [Suspect]
     Indication: DRUG USE FOR UNKNOWN INDICATION

REACTIONS (12)
  - AGGRESSION [None]
  - AGITATION [None]
  - BLOOD PRESSURE SYSTOLIC DECREASED [None]
  - CARDIAC ENZYMES INCREASED [None]
  - COMA [None]
  - CYANOSIS [None]
  - FEELING ABNORMAL [None]
  - HYPERTENSION [None]
  - MIOSIS [None]
  - OVERDOSE [None]
  - RESPIRATORY RATE DECREASED [None]
  - TACHYCARDIA [None]
